FAERS Safety Report 9769689 (Version 1)
Quarter: 2013Q4

REPORT INFORMATION
  Report Type: Spontaneous
  Country: US (occurrence: US)
  Receive Date: 20131218
  Receipt Date: 20131218
  Transmission Date: 20140711
  Serious: No
  Sender: FDA-Public Use
  Company Number: US-VERTEX PHARMACEUTICALS INC-AE-2011-000417

PATIENT
  Age: 53 Year
  Sex: Male

DRUGS (6)
  1. INCIVEK [Suspect]
     Indication: HEPATITIS C
     Route: 048
     Dates: start: 20110613
  2. RIBAPAK [Concomitant]
     Indication: HEPATITIS C
     Route: 048
     Dates: start: 20110613
  3. PEGINTERFERON A [Concomitant]
     Indication: HEPATITIS C
     Route: 058
     Dates: start: 20110613
  4. TARKA [Concomitant]
     Indication: HYPERTENSION
     Route: 048
  5. SPIRONOLACTONE [Concomitant]
     Indication: HYPERTENSION
     Route: 048
  6. TYLENOL [Concomitant]
     Route: 048

REACTIONS (1)
  - Back pain [Not Recovered/Not Resolved]
